FAERS Safety Report 15355646 (Version 1)
Quarter: 2018Q3

REPORT INFORMATION
  Report Type: Spontaneous
  Country: GR (occurrence: GR)
  Receive Date: 20180906
  Receipt Date: 20180906
  Transmission Date: 20181010
  Serious: Yes (Disabling)
  Sender: FDA-Public Use
  Company Number: GR-TEVA-2018-GR-951791

PATIENT
  Age: 82 Year
  Sex: Male
  Weight: 73 kg

DRUGS (10)
  1. GLUCOPHAGE [Concomitant]
     Active Substance: METFORMIN HYDROCHLORIDE
     Route: 048
     Dates: start: 2006
  2. CARVEPEN [Concomitant]
     Active Substance: CARVEDILOL
     Route: 048
     Dates: start: 2006
  3. NITRONG TTS [Concomitant]
     Dates: start: 2006
  4. EPLERENONE 25 MG [Concomitant]
     Route: 048
     Dates: start: 2006
  5. OMEPRAZOLE. [Concomitant]
     Active Substance: OMEPRAZOLE
     Route: 048
     Dates: start: 2006
  6. CLOVELEN 75 MG [Concomitant]
     Route: 048
     Dates: start: 2006
  7. TRIATEC 5 MG [Concomitant]
     Active Substance: RAMIPRIL
     Route: 048
     Dates: start: 2006
  8. SALOSPIR 100 MG [Concomitant]
     Route: 048
     Dates: start: 2006
  9. SIMVASTATIN. [Suspect]
     Active Substance: SIMVASTATIN
     Route: 048
     Dates: start: 2006
  10. ATORVASTATIN [Suspect]
     Active Substance: ATORVASTATIN
     Route: 048
     Dates: start: 2004

REACTIONS (2)
  - Myalgia [Recovered/Resolved]
  - Gait inability [Recovered/Resolved]

NARRATIVE: CASE EVENT DATE: 2004
